FAERS Safety Report 9854131 (Version 65)
Quarter: 2022Q2

REPORT INFORMATION
  Report Type: Other
  Country: CA (occurrence: None)
  Receive Date: 20140129
  Receipt Date: 20220617
  Transmission Date: 20220720
  Serious: Yes (Other)
  Sender: FDA-Public Use
  Company Number: CA-ROCHE-1161332

PATIENT
  Age: 72 Year
  Sex: Female
  Weight: 87 kg

DRUGS (16)
  1. ACTEMRA [Suspect]
     Active Substance: TOCILIZUMAB
     Indication: Rheumatoid arthritis
     Route: 042
     Dates: start: 20121025, end: 20130115
  2. ACTEMRA [Suspect]
     Active Substance: TOCILIZUMAB
     Route: 042
     Dates: start: 20130214, end: 20220114
  3. ACTEMRA [Suspect]
     Active Substance: TOCILIZUMAB
     Route: 042
     Dates: start: 20220310, end: 202206
  4. LIPITOR [Suspect]
     Active Substance: ATORVASTATIN CALCIUM
     Indication: Blood cholesterol increased
     Route: 065
  5. ALENDRONATE [Suspect]
     Active Substance: ALENDRONATE SODIUM
     Indication: Product used for unknown indication
     Route: 065
  6. PRAVASTATIN [Suspect]
     Active Substance: PRAVASTATIN
     Indication: Product used for unknown indication
     Route: 048
  7. COVID-19 VACCINE NOS [Suspect]
     Active Substance: COVID-19 VACCINE NOS
     Indication: Immunisation
     Route: 065
  8. XANAX [Concomitant]
     Active Substance: ALPRAZOLAM
     Indication: Product used for unknown indication
  9. TYLENOL ARTHRITIS PAIN [Concomitant]
     Active Substance: ACETAMINOPHEN
     Indication: Arthritis
  10. HYDROXYCHLOROQUINE SULFATE [Concomitant]
     Active Substance: HYDROXYCHLOROQUINE SULFATE
     Indication: Product used for unknown indication
  11. IBUPROFEN [Concomitant]
     Active Substance: IBUPROFEN
     Indication: Product used for unknown indication
  12. SULFASALAZINE [Concomitant]
     Active Substance: SULFASALAZINE
     Indication: Product used for unknown indication
  13. ALPRAZOLAM [Concomitant]
     Active Substance: ALPRAZOLAM
     Indication: Product used for unknown indication
  14. PAROXETINE [Concomitant]
     Active Substance: PAROXETINE
     Indication: Product used for unknown indication
  15. GLYBURIDE [Concomitant]
     Active Substance: GLYBURIDE
     Indication: Product used for unknown indication
  16. KENALOG [Concomitant]
     Active Substance: TRIAMCINOLONE ACETONIDE

REACTIONS (65)
  - Blood cholesterol increased [Unknown]
  - Blood pressure increased [Not Recovered/Not Resolved]
  - Electrocardiogram abnormal [Unknown]
  - Hepatic steatosis [Unknown]
  - Osteoporosis [Unknown]
  - Cholelithiasis [Not Recovered/Not Resolved]
  - Arthralgia [Unknown]
  - Vessel puncture site bruise [Not Recovered/Not Resolved]
  - Gastric disorder [Recovered/Resolved]
  - Pain in extremity [Not Recovered/Not Resolved]
  - Weight increased [Unknown]
  - Arthralgia [Not Recovered/Not Resolved]
  - Poor dental condition [Unknown]
  - Muscular weakness [Not Recovered/Not Resolved]
  - Peripheral swelling [Not Recovered/Not Resolved]
  - Joint swelling [Not Recovered/Not Resolved]
  - Pain [Not Recovered/Not Resolved]
  - Weight decreased [Unknown]
  - Malaise [Unknown]
  - Hyperhidrosis [Not Recovered/Not Resolved]
  - Agitation [Unknown]
  - Arthralgia [Not Recovered/Not Resolved]
  - Rash [Not Recovered/Not Resolved]
  - Rheumatoid arthritis [Recovering/Resolving]
  - Haemorrhoids [Recovering/Resolving]
  - Chromaturia [Not Recovered/Not Resolved]
  - Back pain [Recovering/Resolving]
  - Ligament sprain [Unknown]
  - Fall [Unknown]
  - Nasopharyngitis [Recovered/Resolved]
  - Influenza [Not Recovered/Not Resolved]
  - Infusion related reaction [Unknown]
  - Heart rate increased [Unknown]
  - Oxygen saturation decreased [Unknown]
  - Pruritus [Recovered/Resolved]
  - Heart rate decreased [Unknown]
  - Rash [Unknown]
  - Pruritus [Recovered/Resolved]
  - Oxygen saturation decreased [Unknown]
  - Heart rate increased [Unknown]
  - Pain [Unknown]
  - Headache [Unknown]
  - Arthralgia [Unknown]
  - Fungal infection [Recovered/Resolved]
  - Hypotension [Unknown]
  - Pruritus [Not Recovered/Not Resolved]
  - Blood pressure systolic increased [Unknown]
  - Diarrhoea [Recovered/Resolved]
  - Therapeutic product effect decreased [Unknown]
  - Heart rate decreased [Unknown]
  - Heart rate increased [Unknown]
  - Blood pressure systolic abnormal [Unknown]
  - Tooth disorder [Unknown]
  - Nasal congestion [Unknown]
  - Blood pressure diastolic abnormal [Unknown]
  - Arthralgia [Unknown]
  - Muscle strain [Unknown]
  - Mobility decreased [Unknown]
  - Rib fracture [Unknown]
  - Oxygen saturation decreased [Unknown]
  - Bone disorder [Unknown]
  - Dizziness [Unknown]
  - Spinal fracture [Unknown]
  - COVID-19 [Unknown]
  - Drug ineffective [Unknown]

NARRATIVE: CASE EVENT DATE: 20121126
